FAERS Safety Report 25013951 (Version 2)
Quarter: 2025Q1

REPORT INFORMATION
  Report Type: Spontaneous
  Country: US (occurrence: US)
  Receive Date: 20250226
  Receipt Date: 20250310
  Transmission Date: 20250409
  Serious: No
  Sender: BAYER HEALTHCARE LLC
  Company Number: US-BAYER-2025A027392

PATIENT
  Age: 73 Year
  Sex: Male
  Weight: 84.354 kg

DRUGS (1)
  1. MIRALAX [Suspect]
     Active Substance: POLYETHYLENE GLYCOL 3350
     Dosage: 1/2 CAP, QD

REACTIONS (2)
  - Abdominal distension [Unknown]
  - Incorrect dose administered [Unknown]
